APPROVED DRUG PRODUCT: MELFIAT
Active Ingredient: PHENDIMETRAZINE TARTRATE
Strength: 35MG
Dosage Form/Route: TABLET;ORAL
Application: A083790 | Product #002
Applicant: NUMARK LABORATORIES INC
Approved: Approved Prior to Jan 1, 1982 | RLD: No | RS: No | Type: DISCN